FAERS Safety Report 20640937 (Version 1)
Quarter: 2022Q1

REPORT INFORMATION
  Report Type: Spontaneous
  Country: AU (occurrence: AU)
  Receive Date: 20220327
  Receipt Date: 20220327
  Transmission Date: 20220424
  Serious: Yes (Other)
  Sender: FDA-Public Use
  Company Number: AU-NOVEN PHARMACEUTICALS, INC.-2022-NOV-AU000244

PATIENT
  Age: 28 Year
  Sex: Male

DRUGS (8)
  1. ESTRADIOL [Suspect]
     Active Substance: ESTRADIOL
     Indication: Transgender hormonal therapy
     Dosage: 4MG, UNKNOWN
     Route: 065
  2. ESTRADIOL [Suspect]
     Active Substance: ESTRADIOL
     Dosage: 2MG, UNKNOWN
     Route: 065
  3. SPIRONOLACTONE [Suspect]
     Active Substance: SPIRONOLACTONE
     Indication: Transgender hormonal therapy
     Dosage: 200MG/DAY, UNKNOWN
     Route: 065
  4. SPIRONOLACTONE [Suspect]
     Active Substance: SPIRONOLACTONE
     Dosage: 300MG/DAY, UNKNOWN
     Route: 065
  5. SPIRONOLACTONE [Suspect]
     Active Substance: SPIRONOLACTONE
     Dosage: 200MG/DAY, UNK
     Route: 065
  6. SPIRONOLACTONE [Suspect]
     Active Substance: SPIRONOLACTONE
     Dosage: 100MG/DAY, UNKNOWN
     Route: 065
  7. MEDROXYPROGESTERONE [Suspect]
     Active Substance: MEDROXYPROGESTERONE
     Indication: Transgender hormonal therapy
     Dosage: 10MG, UNKNOWN
     Route: 065
  8. MEDROXYPROGESTERONE [Suspect]
     Active Substance: MEDROXYPROGESTERONE
     Dosage: 5MG, UNKNOWN
     Route: 065

REACTIONS (2)
  - Testis cancer [Recovered/Resolved]
  - Product use issue [Unknown]
